FAERS Safety Report 9264666 (Version 2)
Quarter: 2013Q3

REPORT INFORMATION
  Report Type: Spontaneous
  Country: US (occurrence: US)
  Receive Date: 20130501
  Receipt Date: 20130816
  Transmission Date: 20140515
  Serious: No
  Sender: FDA-Public Use
  Company Number: US-BIOGENIDEC-2013BI038591

PATIENT
  Sex: Female
  Weight: 53 kg

DRUGS (12)
  1. TYSABRI [Suspect]
     Indication: MULTIPLE SCLEROSIS
     Route: 042
     Dates: start: 20100513
  2. VICOPROFEN [Concomitant]
  3. CYCLOBENZAPRINE [Concomitant]
  4. CLONAZEPAM [Concomitant]
  5. GABAPENTIN [Concomitant]
  6. LEXAPRO [Concomitant]
  7. MELOXICAM [Concomitant]
  8. MULTIVITAMIN [Concomitant]
  9. VITAMIN D [Concomitant]
  10. IMITREX [Concomitant]
  11. ESTRADIOL [Concomitant]
  12. FISH OIL [Concomitant]

REACTIONS (13)
  - Neck pain [Unknown]
  - Pain in extremity [Unknown]
  - Migraine [Unknown]
  - Hypoaesthesia [Unknown]
  - Paraesthesia [Unknown]
  - Cervical spinal stenosis [Unknown]
  - Temporomandibular joint syndrome [Unknown]
  - Exfoliative rash [Unknown]
  - Dry skin [Unknown]
  - Spinal osteoarthritis [Unknown]
  - Multiple sclerosis [Unknown]
  - Eczema [Unknown]
  - Rash [Unknown]
